FAERS Safety Report 5159108-8 (Version None)
Quarter: 2006Q4

REPORT INFORMATION
  Report Type: 
  Country: None (occurrence: None)
  Receive Date: 20061116
  Receipt Date: 20061101
  Transmission Date: 20070319
  Serious: Yes (Other)
  Sender: FDA-Public Use
  Company Number: 13509393

PATIENT
  Sex: Male

DRUGS (4)
  1. EMSAM [Suspect]
     Indication: MAJOR DEPRESSION
     Dosage: 6 MILLIGRAM, 1/24 HOUR TD
     Route: 062
  2. XANAX [Concomitant]
  3. AMBIEN [Concomitant]
  4. LAMOTRIGINE [Concomitant]

REACTIONS (3)
  - BLOOD PRESSURE INCREASED [None]
  - HEADACHE [None]
  - TREMOR [None]
